FAERS Safety Report 6814443-X (Version None)
Quarter: 2010Q3

REPORT INFORMATION
  Report Type: 
  Country: None (occurrence: None)
  Receive Date: 20100702
  Receipt Date: 20100621
  Transmission Date: 20110219
  Serious: Yes (Hospitalization, Other)
  Sender: FDA-Public Use
  Company Number: PHHY2009TW61030

PATIENT
  Sex: Male

DRUGS (3)
  1. EXJADE [Suspect]
     Dosage: 1000 MG, UNK
     Route: 048
     Dates: start: 20091104
  2. EXJADE [Suspect]
     Dosage: 1000 MG
     Route: 048
     Dates: start: 20100107
  3. EXJADE [Suspect]
     Dosage: 1000 MG
     Route: 048
     Dates: start: 20100222

REACTIONS (6)
  - BLOOD GLUCOSE DECREASED [None]
  - CELLULITIS [None]
  - FALL [None]
  - HERNIA [None]
  - MICTURITION URGENCY [None]
  - PRURITUS [None]
